FAERS Safety Report 11976880 (Version 1)
Quarter: 2016Q1

REPORT INFORMATION
  Report Type: Spontaneous
  Country: US (occurrence: US)
  Receive Date: 20160129
  Receipt Date: 20160129
  Transmission Date: 20160526
  Serious: No
  Sender: FDA-Public Use
  Company Number: US-PERRIGO-15US002889

PATIENT
  Age: 64 Year
  Sex: Female
  Weight: 106.12 kg

DRUGS (6)
  1. PERMETHRIN 1% 955 [Suspect]
     Active Substance: PERMETHRIN
     Dosage: 1 APPLICATION, SINGLE
     Route: 061
     Dates: start: 20150311, end: 20150311
  2. DEPAKOTE [Concomitant]
     Active Substance: DIVALPROEX SODIUM
     Indication: MIGRAINE
     Dosage: UNK
     Route: 065
  3. PERMETHRIN 1% 955 [Suspect]
     Active Substance: PERMETHRIN
     Indication: LICE INFESTATION
     Dosage: 1 APPLICATION, SINGLE
     Route: 061
     Dates: start: 20150218, end: 20150218
  4. PERMETHRIN 1% 955 [Suspect]
     Active Substance: PERMETHRIN
     Dosage: 1 APPLICATION, SINGLE
     Route: 061
     Dates: start: 20150225, end: 20150225
  5. PERMETHRIN 1% 955 [Suspect]
     Active Substance: PERMETHRIN
     Dosage: 1 APPLICATION, SINGLE
     Route: 061
     Dates: start: 20150304, end: 20150304
  6. SYNTHROID [Concomitant]
     Active Substance: LEVOTHYROXINE SODIUM
     Indication: HYPOTHYROIDISM
     Dosage: UNK
     Route: 065

REACTIONS (1)
  - Application site pain [Recovered/Resolved]

NARRATIVE: CASE EVENT DATE: 20150218
